FAERS Safety Report 6588117-7 (Version None)
Quarter: 2010Q1

REPORT INFORMATION
  Report Type: 
  Country: None (occurrence: None)
  Receive Date: 20100218
  Receipt Date: 20100215
  Transmission Date: 20100710
  Serious: Yes (Other)
  Sender: FDA-Public Use
  Company Number: CHPA2010US03171

PATIENT
  Age: 3 Year
  Sex: Female
  Weight: 12.698 kg

DRUGS (2)
  1. EX-LAX REG STR CHOCOLATED LAX PCS SEN (NCH) [Suspect]
     Indication: CONSTIPATION
     Dosage: 15-45MG ONCE IN 24 HOURS
     Route: 048
     Dates: start: 20090901
  2. EX-LAX REG STR CHOCOLATED LAX PCS SEN (NCH) [Suspect]
     Indication: ENCOPRESIS

REACTIONS (4)
  - INTENTIONAL DRUG MISUSE [None]
  - OFF LABEL USE [None]
  - OVERDOSE [None]
  - RECTAL PROLAPSE [None]
